FAERS Safety Report 5121104-4 (Version None)
Quarter: 2006Q4

REPORT INFORMATION
  Report Type: 
  Country: None (occurrence: None)
  Receive Date: 20061002
  Receipt Date: 20060919
  Transmission Date: 20070319
  Serious: Yes (Death, Hospitalization)
  Sender: FDA-Public Use
  Company Number: 2006113248

PATIENT
  Age: 55 Year
  Sex: Male

DRUGS (7)
  1. SUTENT [Suspect]
     Indication: RENAL CELL CARCINOMA STAGE UNSPECIFIED
     Dosage: 50 MG (50 MG, 1 IN 1 D), ORAL
     Route: 048
     Dates: start: 20060811, end: 20060901
  2. LASIX [Concomitant]
  3. SOLUPRED                      (PREDNISOLONE SODIUM SULFOBENZOATE) [Concomitant]
  4. MORPHINE SULFATE [Concomitant]
  5. NEXIUM [Concomitant]
  6. SILOMAT (CLOBUTINOL HYDROCHLORIDE) [Concomitant]
  7. OXYGEN (OXYGEN) [Concomitant]

REACTIONS (3)
  - DISEASE PROGRESSION [None]
  - PLEURAL EFFUSION [None]
  - RESPIRATORY FAILURE [None]
